FAERS Safety Report 17280500 (Version 1)
Quarter: 2020Q1

REPORT INFORMATION
  Report Type: Spontaneous
  Country: US (occurrence: US)
  Receive Date: 20200117
  Receipt Date: 20200117
  Transmission Date: 20200409
  Serious: No
  Sender: FDA-Public Use
  Company Number: US-UCBSA-2019020873

PATIENT
  Sex: Female

DRUGS (3)
  1. VIMPAT [Concomitant]
     Active Substance: LACOSAMIDE
     Indication: EPILEPSY
     Dosage: 200 MILLIGRAM, 2X/DAY (BID)
  2. ONFI [Concomitant]
     Active Substance: CLOBAZAM
     Indication: EPILEPSY
     Dosage: 20 MILLIGRAM, ONCE DAILY (QD)
  3. KEPPRA [Suspect]
     Active Substance: LEVETIRACETAM
     Indication: EPILEPSY
     Dosage: 1500 MG IN THE MORNING AND 2000 MG IN THE NIGHT, 2X/DAY (BID)
     Route: 048
     Dates: end: 20190128

REACTIONS (5)
  - Off label use [Unknown]
  - Alopecia [Not Recovered/Not Resolved]
  - Hyposomnia [Unknown]
  - Irritability [Unknown]
  - Overdose [Unknown]
